FAERS Safety Report 15553035 (Version 1)
Quarter: 2018Q4

REPORT INFORMATION
  Report Type: Spontaneous
  Country: US (occurrence: US)
  Receive Date: 20181026
  Receipt Date: 20181026
  Transmission Date: 20190205
  Serious: Yes (Hospitalization)
  Sender: FDA-Public Use
  Company Number: US-VIFOR (INTERNATIONAL) INC.-VIT-2018-10387

PATIENT
  Sex: Male

DRUGS (13)
  1. CYCLOBENZAPRINE HCL [Concomitant]
     Active Substance: CYCLOBENZAPRINE HYDROCHLORIDE
  2. CARVEDILOL. [Concomitant]
     Active Substance: CARVEDILOL
  3. VITAMIN D [Concomitant]
     Active Substance: CHOLECALCIFEROL
  4. GABAPENTIN. [Concomitant]
     Active Substance: GABAPENTIN
  5. TRAMADOL HCL [Concomitant]
     Active Substance: TRAMADOL HYDROCHLORIDE
  6. PHOSLO [Concomitant]
     Active Substance: CALCIUM ACETATE
  7. HYDRALAZINE HCL [Concomitant]
     Active Substance: HYDRALAZINE HYDROCHLORIDE
  8. REQUIP [Concomitant]
     Active Substance: ROPINIROLE HYDROCHLORIDE
  9. VELTASSA [Suspect]
     Active Substance: PATIROMER
     Indication: HYPERKALAEMIA
  10. DIALYVITE [Concomitant]
     Active Substance: ASCORBIC ACID\BIOTIN\CALCIUM PANTOTHENATE\COBALAMIN\FOLIC ACID\NIACINAMIDE\PYRIDOXINE HYDROCHLORIDE\RIBOFLAVIN\THIAMINE MONONITRATE
  11. ASPIRIN EC [Concomitant]
     Active Substance: ASPIRIN
  12. LIPITOR [Concomitant]
     Active Substance: ATORVASTATIN CALCIUM
  13. AMLODIPINE BESYLATE. [Concomitant]
     Active Substance: AMLODIPINE BESYLATE

REACTIONS (1)
  - Hospitalisation [Unknown]
